FAERS Safety Report 6637070-6 (Version None)
Quarter: 2010Q1

REPORT INFORMATION
  Report Type: 
  Country: None (occurrence: None)
  Receive Date: 20100316
  Receipt Date: 20100311
  Transmission Date: 20100710
  Serious: Yes (Death, Other)
  Sender: FDA-Public Use
  Company Number: US-ROXANE LABORATORIES, INC.-2010-RO-00256RO

PATIENT
  Age: 70 Year
  Sex: Female

DRUGS (1)
  1. METHOTREXATE [Suspect]
     Indication: KERATOACANTHOMA

REACTIONS (4)
  - DEATH [None]
  - KERATOACANTHOMA [None]
  - LUNG NEOPLASM MALIGNANT [None]
  - SQUAMOUS CELL CARCINOMA [None]
